FAERS Safety Report 21696376 (Version 1)
Quarter: 2022Q4

REPORT INFORMATION
  Report Type: Spontaneous
  Country: US (occurrence: US)
  Receive Date: 20221207
  Receipt Date: 20221207
  Transmission Date: 20230113
  Serious: No
  Sender: FDA-Public Use
  Company Number: US-NOVOPROD-881393

PATIENT
  Age: 81 Year
  Sex: Female

DRUGS (2)
  1. NOVOLIN 70/30 [Suspect]
     Active Substance: INSULIN HUMAN
     Indication: Diabetes mellitus
     Dosage: 70 IU, QD
     Route: 058
  2. NOVOLIN R [Concomitant]
     Active Substance: INSULIN HUMAN
     Indication: Diabetes mellitus
     Dosage: UNK
     Route: 058

REACTIONS (3)
  - Headache [Recovered/Resolved]
  - Hypotension [Recovered/Resolved]
  - Increased insulin requirement [Not Recovered/Not Resolved]

NARRATIVE: CASE EVENT DATE: 20211226
